FAERS Safety Report 9645820 (Version 1)
Quarter: 2013Q4

REPORT INFORMATION
  Report Type: Spontaneous
  Country: US (occurrence: None)
  Receive Date: 20131023
  Receipt Date: 20131023
  Transmission Date: 20140711
  Serious: Yes (Hospitalization)
  Sender: FDA-Public Use
  Company Number: UTC-039137

PATIENT
  Age: 14 Year
  Sex: Male
  Weight: 81.81 kg

DRUGS (2)
  1. REMODULIN [Suspect]
     Indication: PULMONARY ARTERIAL HYPERTENSION
     Dosage: 142.56 UG/KG (0.099 UG/KG 1 IN 1 MIN)
     Route: 058
     Dates: start: 20130603
  2. REVATION(SILDENAFIL CITRATE) [Concomitant]

REACTIONS (1)
  - Haemoptysis [None]
